FAERS Safety Report 9557579 (Version 1)
Quarter: 2013Q3

REPORT INFORMATION
  Report Type: Spontaneous
  Country: KR (occurrence: KR)
  Receive Date: 20130926
  Receipt Date: 20130926
  Transmission Date: 20140515
  Serious: Yes (Other)
  Sender: FDA-Public Use
  Company Number: KR-ACTAVIS-2013-16697

PATIENT
  Age: 67 Year
  Sex: Male

DRUGS (2)
  1. TRAMADOL (UNKNOWN) [Suspect]
     Indication: POST HERPETIC NEURALGIA
     Dosage: 400 MG, DAILY
     Route: 065
  2. PREGABALIN [Concomitant]
     Indication: POST HERPETIC NEURALGIA
     Dosage: 225 MG, DAILY
     Route: 048

REACTIONS (4)
  - Hyperaesthesia [Recovered/Resolved]
  - Hyperhidrosis [Recovered/Resolved]
  - Chills [Recovered/Resolved]
  - Rhinorrhoea [Recovered/Resolved]
